FAERS Safety Report 9973668 (Version 1)
Quarter: 2014Q1

REPORT INFORMATION
  Report Type: Spontaneous
  Country: RO (occurrence: RO)
  Receive Date: 20140306
  Receipt Date: 20140306
  Transmission Date: 20141002
  Serious: Yes (Hospitalization)
  Sender: FDA-Public Use
  Company Number: PHHY2014RO023613

PATIENT
  Age: 47 Year
  Sex: Female

DRUGS (2)
  1. RIBAVIRIN [Suspect]
     Indication: CHRONIC HEPATITIS C
     Dosage: 1000 MG/DAY
  2. PEGYLATED INTERFERON ALFA-2A [Suspect]
     Indication: CHRONIC HEPATITIS C
     Dosage: 180 UG PER WEEK

REACTIONS (20)
  - Stress cardiomyopathy [Unknown]
  - Chest pain [Unknown]
  - Dyspnoea [Unknown]
  - Palpitations [Unknown]
  - Hyperhidrosis [Unknown]
  - Fatigue [Unknown]
  - Hypocholesterolaemia [Unknown]
  - Hepatic enzyme increased [Unknown]
  - Ventricular hypokinesia [Unknown]
  - Electrocardiogram ST segment elevation [Unknown]
  - Tachycardia [Unknown]
  - Goitre [Unknown]
  - Thyroiditis [Unknown]
  - Ventricular dysfunction [Unknown]
  - Anaemia [Unknown]
  - Hyperthyroidism [Unknown]
  - Leukopenia [Unknown]
  - Nervousness [Unknown]
  - Hyperkinesia [Unknown]
  - Temperature intolerance [Unknown]
